FAERS Safety Report 18209758 (Version 1)
Quarter: 2020Q3

REPORT INFORMATION
  Report Type: Spontaneous
  Country: US (occurrence: US)
  Receive Date: 20200828
  Receipt Date: 20200828
  Transmission Date: 20201103
  Serious: No
  Sender: FDA-Public Use
  Company Number: US-ENDO PHARMACEUTICALS INC-2019-107328

PATIENT

DRUGS (6)
  1. MESALAZINE [Concomitant]
     Active Substance: MESALAMINE
     Indication: PRODUCT USED FOR UNKNOWN INDICATION
     Dosage: UNK
     Route: 065
     Dates: start: 201801
  2. XELJANZ [Suspect]
     Active Substance: TOFACITINIB CITRATE
     Indication: COLITIS ULCERATIVE
     Dosage: 10 MG, BID
     Route: 065
     Dates: start: 20190312
  3. PREDNISONE. [Suspect]
     Active Substance: PREDNISONE
     Indication: FREQUENT BOWEL MOVEMENTS
     Dosage: UNK UNKNOWN, UNKNOWN
     Route: 065
     Dates: start: 20190515, end: 20190721
  4. PREDNISONE. [Suspect]
     Active Substance: PREDNISONE
     Indication: HAEMATOCHEZIA
  5. PREDNISONE. [Suspect]
     Active Substance: PREDNISONE
     Indication: DIARRHOEA
  6. XELJANZ [Suspect]
     Active Substance: TOFACITINIB CITRATE
     Dosage: 10 MG, BID
     Route: 065
     Dates: start: 20190412

REACTIONS (4)
  - Diarrhoea [Unknown]
  - Therapeutic response delayed [Unknown]
  - Defaecation urgency [Unknown]
  - Frequent bowel movements [Unknown]
